FAERS Safety Report 8776865 (Version 4)
Quarter: 2013Q3

REPORT INFORMATION
  Report Type: Spontaneous
  Country: FR (occurrence: FR)
  Receive Date: 20120911
  Receipt Date: 20130912
  Transmission Date: 20140515
  Serious: Yes (Hospitalization)
  Sender: FDA-Public Use
  Company Number: FR-JNJFOC-20120900771

PATIENT
  Age: 44 Year
  Sex: Male

DRUGS (5)
  1. RISPERDAL [Suspect]
     Indication: DEPRESSION
     Route: 048
  2. RISPERDAL [Suspect]
     Indication: DEPRESSION
     Route: 048
     Dates: start: 20111215, end: 20120818
  3. ZOLOFT [Concomitant]
  4. TRAMADOL HYDROCHLORIDE [Concomitant]
     Route: 065
  5. ACUPAN [Concomitant]
     Route: 065

REACTIONS (5)
  - Pulmonary embolism [Recovered/Resolved]
  - Dyspnoea at rest [Recovered/Resolved]
  - Chest pain [Recovered/Resolved]
  - Haemoptysis [Recovered/Resolved]
  - Fibrin D dimer increased [Recovered/Resolved]
